FAERS Safety Report 9727536 (Version 1)
Quarter: 2013Q4

REPORT INFORMATION
  Report Type: Spontaneous
  Country: DE (occurrence: DE)
  Receive Date: 20131203
  Receipt Date: 20131203
  Transmission Date: 20140711
  Serious: Yes (Other)
  Sender: FDA-Public Use
  Company Number: DE-009507513-1312DEU000517

PATIENT
  Age: 50 Year
  Sex: Female

DRUGS (3)
  1. INTERFERON ALFA-2B [Suspect]
     Indication: ALLERGIC GRANULOMATOUS ANGIITIS
     Dosage: 9 MILLION IU, QW
  2. PREDNISOLONE [Concomitant]
     Indication: DYSPNOEA
     Dosage: 10-100 MG/DAY
  3. PREDNISOLONE [Concomitant]
     Dosage: 40 MG, DAILY

REACTIONS (5)
  - Bone marrow failure [Recovered/Resolved]
  - Fatigue [Recovered/Resolved]
  - Depression [Recovered/Resolved]
  - Hyperthyroidism [Recovered/Resolved]
  - Anaemia [Recovered/Resolved]
